FAERS Safety Report 18043752 (Version 1)
Quarter: 2020Q3

REPORT INFORMATION
  Report Type: Spontaneous
  Country: US (occurrence: US)
  Receive Date: 20200718
  Receipt Date: 20200718
  Transmission Date: 20201103
  Serious: Yes (Disabling)
  Sender: FDA-Public Use
  Company Number: None

PATIENT
  Age: 5 Year
  Sex: Male
  Weight: 17.55 kg

DRUGS (6)
  1. CLARITIN [Concomitant]
     Active Substance: LORATADINE
  2. PROBIOTICS [Concomitant]
     Active Substance: PROBIOTICS NOS
  3. VITAMIN C [Concomitant]
     Active Substance: ASCORBIC ACID
  4. MIRALAX [Suspect]
     Active Substance: POLYETHYLENE GLYCOL 3350
     Indication: CONSTIPATION
     Dates: start: 20170101, end: 20200707
  5. FIBER [Concomitant]
     Active Substance: PSYLLIUM HUSK
  6. MAGNESIUM [Concomitant]
     Active Substance: MAGNESIUM

REACTIONS (9)
  - Mood swings [None]
  - Attention deficit hyperactivity disorder [None]
  - Anger [None]
  - Paranoia [None]
  - Aggression [None]
  - Obsessive-compulsive disorder [None]
  - Seizure [None]
  - Anxiety [None]
  - Ehlers-Danlos syndrome [None]

NARRATIVE: CASE EVENT DATE: 20200707
